FAERS Safety Report 7763724-4 (Version None)
Quarter: 2011Q3

REPORT INFORMATION
  Report Type: 
  Country: None (occurrence: None)
  Receive Date: 20110921
  Receipt Date: 20110912
  Transmission Date: 20111222
  Serious: Yes (Other)
  Sender: FDA-Public Use
  Company Number: NL-AMGEN-NLDSP2011047450

PATIENT
  Age: 63 Year
  Sex: Female

DRUGS (6)
  1. METOPROLOL TARTRATE [Concomitant]
     Dosage: UNK UNK, UNK
  2. ENBREL [Suspect]
     Indication: RHEUMATOID ARTHRITIS
     Dosage: 50 MG, WEEKLY
     Dates: start: 20110606
  3. LOSARTAN POTASSIUM [Concomitant]
     Dosage: UNK UNK, UNK
  4. METHOTREXATE SODIUM [Concomitant]
     Dosage: UNK UNK, UNK
  5. FOLIC ACID [Concomitant]
     Dosage: UNK UNK, UNK
  6. IBUPROFEN [Concomitant]
     Dosage: UNK UNK, UNK

REACTIONS (3)
  - PRURITUS [None]
  - TOOTH LOSS [None]
  - OSTEOMYELITIS [None]
